FAERS Safety Report 8086860-4 (Version None)
Quarter: 2012Q1

REPORT INFORMATION
  Report Type: 
  Country: None (occurrence: None)
  Receive Date: 20120128
  Receipt Date: 20110519
  Transmission Date: 20120608
  Serious: No
  Sender: FDA-Public Use
  Company Number: US-ABBOTT-11P-163-0727137-00

PATIENT
  Age: 18 Year
  Sex: Female

DRUGS (2)
  1. METHOTREXATE [Concomitant]
     Indication: CROHN'S DISEASE
     Route: 050
     Dates: end: 20110519
  2. HUMIRA [Suspect]
     Indication: CROHN'S DISEASE
     Dates: start: 20110310

REACTIONS (2)
  - ARTHROPOD BITE [None]
  - OEDEMA PERIPHERAL [None]
